FAERS Safety Report 8604631-4 (Version None)
Quarter: 2012Q3

REPORT INFORMATION
  Report Type: 
  Country: None (occurrence: None)
  Receive Date: 20120820
  Receipt Date: 20120813
  Transmission Date: 20120928
  Serious: Yes (Other)
  Sender: FDA-Public Use
  Company Number: PHHY2012DE070400

PATIENT
  Sex: Female

DRUGS (1)
  1. SANDIMMUNE [Suspect]
     Dosage: 40 MG, BID
     Dates: start: 20120806, end: 20120809

REACTIONS (4)
  - SCREAMING [None]
  - ABNORMAL BEHAVIOUR [None]
  - AGGRESSION [None]
  - PERSONALITY CHANGE [None]
